FAERS Safety Report 15545121 (Version 1)
Quarter: 2018Q4

REPORT INFORMATION
  Report Type: Spontaneous
  Country: FR (occurrence: FR)
  Receive Date: 20181024
  Receipt Date: 20181024
  Transmission Date: 20190205
  Serious: Yes (Life-Threatening, Other)
  Sender: FDA-Public Use
  Company Number: FR-ACCORD-073790

PATIENT
  Age: 63 Year
  Sex: Female

DRUGS (4)
  1. CARBOPLATIN. [Suspect]
     Active Substance: CARBOPLATIN
     Indication: OVARIAN CANCER
     Dosage: DRUG WITHDRAWN DURING THIRD LINE THRAPY, AGAIN IN 2017, DOSE REDUCED
     Dates: start: 2012
  2. GEMCITABINE/GEMCITABINE HYDROCHLORIDE [Suspect]
     Active Substance: GEMCITABINE\GEMCITABINE HYDROCHLORIDE
     Indication: OVARIAN CANCER RECURRENT
     Dosage: ON DAYS 1 AND 8, FOR 6 CYCLES
     Dates: start: 201508, end: 201512
  3. BEVACIZUMAB. [Concomitant]
     Active Substance: BEVACIZUMAB
     Indication: OVARIAN CANCER
     Dosage: CYCLES 3, 4, AND 5
     Dates: start: 2012
  4. PACLITAXEL/PACLITAXEL LIPOSOME [Concomitant]
     Indication: OVARIAN CANCER
     Dosage: CYCLES 1, 2 AND 6
     Dates: start: 2012

REACTIONS (10)
  - Hepatotoxicity [Recovered/Resolved]
  - Thrombocytopenia [Unknown]
  - Alopecia [Unknown]
  - Asthenia [Unknown]
  - Escherichia infection [Recovered/Resolved]
  - Neutropenia [Recovered/Resolved]
  - Anaemia [Recovered/Resolved]
  - Pneumonia [Unknown]
  - Neuropathy peripheral [Unknown]
  - Hypersensitivity [Recovered/Resolved]

NARRATIVE: CASE EVENT DATE: 2012
